FAERS Safety Report 19355259 (Version 1)
Quarter: 2021Q2

REPORT INFORMATION
  Report Type: Spontaneous
  Country: US (occurrence: US)
  Receive Date: 20210601
  Receipt Date: 20210601
  Transmission Date: 20210717
  Serious: Yes (Hospitalization)
  Sender: FDA-Public Use
  Company Number: None

PATIENT
  Age: 69 Year
  Sex: Female

DRUGS (1)
  1. HUMIRA [Suspect]
     Active Substance: ADALIMUMAB
     Dosage: ?          OTHER FREQUENCY:40MG Q OTHER WEEK;?
     Route: 030
     Dates: start: 20210205

REACTIONS (5)
  - Haemorrhage [None]
  - Cerebrovascular accident [None]
  - Myocardial infarction [None]
  - Product dose omission in error [None]
  - Visual field defect [None]

NARRATIVE: CASE EVENT DATE: 20210206
